FAERS Safety Report 8103001-5 (Version None)
Quarter: 2012Q1

REPORT INFORMATION
  Report Type: 
  Country: None (occurrence: None)
  Receive Date: 20120127
  Receipt Date: 20120116
  Transmission Date: 20120608
  Serious: Yes (Death)
  Sender: FDA-Public Use
  Company Number: 2012POI057300009

PATIENT
  Age: 32 Year
  Sex: Female

DRUGS (4)
  1. VENLAFAXINE HCL EXTENDED-RELEASE [Suspect]
     Dosage: PER ORAL
     Route: 048
     Dates: end: 20100101
  2. OXYCODONE HCL [Suspect]
     Dosage: PER ORAL
     Route: 048
     Dates: end: 20100101
  3. AMITRIPTYLINE HCL [Suspect]
     Dosage: PER ORAL
     Route: 048
     Dates: end: 20100101
  4. ACETAMINOPHEN AND HYDROCODONE BITARTRATE [Suspect]
     Dosage: PER ORAL
     Route: 048
     Dates: end: 20100101

REACTIONS (2)
  - CARDIAC ARREST [None]
  - RESPIRATORY ARREST [None]
